FAERS Safety Report 18192197 (Version 1)
Quarter: 2020Q3

REPORT INFORMATION
  Report Type: Spontaneous
  Country: US (occurrence: US)
  Receive Date: 20200825
  Receipt Date: 20200825
  Transmission Date: 20201103
  Serious: No
  Sender: FDA-Public Use
  Company Number: US-PFIZER INC-2020323364

PATIENT
  Age: 12 Year
  Sex: Female

DRUGS (3)
  1. EUCRISA [Suspect]
     Active Substance: CRISABOROLE
     Indication: DERMATITIS CONTACT
  2. EUCRISA [Suspect]
     Active Substance: CRISABOROLE
     Indication: RASH
     Dosage: UNK, 2X/DAY (APPLY BY TOPICAL ROUTE 2 TIMES EVERY DAY A THIN LAYER TO THE AFFECTED AREAS)
     Route: 061
     Dates: start: 20180515, end: 20190730
  3. EUCRISA [Suspect]
     Active Substance: CRISABOROLE
     Indication: ECZEMA

REACTIONS (2)
  - Therapeutic product effect incomplete [Unknown]
  - Burning sensation [Unknown]
